FAERS Safety Report 6380516-1 (Version None)
Quarter: 2009Q3

REPORT INFORMATION
  Report Type: 
  Country: None (occurrence: None)
  Receive Date: 20090923
  Receipt Date: 20090909
  Transmission Date: 20100115
  Serious: Yes (Death)
  Sender: FDA-Public Use
  Company Number: POMP-1000664

PATIENT
  Age: 5 Month
  Sex: Female
  Weight: 5.5 kg

DRUGS (2)
  1. MYOZYME [Suspect]
     Indication: GLYCOGEN STORAGE DISEASE TYPE II
     Dosage: 110 U, Q2W, INTRAVENOUS
     Route: 042
     Dates: start: 20090602, end: 20090614
  2. LASIX [Concomitant]

REACTIONS (16)
  - ALANINE AMINOTRANSFERASE INCREASED [None]
  - ASPARTATE AMINOTRANSFERASE INCREASED [None]
  - BLOOD LACTATE DEHYDROGENASE INCREASED [None]
  - BLOOD PRESSURE DIASTOLIC DECREASED [None]
  - BLOOD UREA INCREASED [None]
  - CARDIAC MURMUR [None]
  - DISEASE PROGRESSION [None]
  - GENERAL PHYSICAL HEALTH DETERIORATION [None]
  - GLYCOGEN STORAGE DISEASE TYPE II [None]
  - HEART RATE INCREASED [None]
  - HEPATOMEGALY [None]
  - HYPERTROPHIC CARDIOMYOPATHY [None]
  - HYPOTONIA [None]
  - MALAISE [None]
  - PALLOR [None]
  - RESPIRATORY DISTRESS [None]
